FAERS Safety Report 9358796 (Version 2)
Quarter: 2013Q3

REPORT INFORMATION
  Report Type: Spontaneous
  Country: US (occurrence: US)
  Receive Date: 20130620
  Receipt Date: 20130808
  Transmission Date: 20140515
  Serious: Yes (Hospitalization)
  Sender: FDA-Public Use
  Company Number: US-BAYER-2013-074095

PATIENT
  Age: 40 Year
  Sex: Female
  Weight: 72.56 kg

DRUGS (4)
  1. YASMIN [Suspect]
     Dosage: UNK
     Dates: start: 200406, end: 20060306
  2. YAZ [Suspect]
     Dosage: UNK
     Dates: start: 200406, end: 20060306
  3. ALBUTEROL INHALER [Concomitant]
     Dosage: AS NEEDED
  4. PROVENTIL [Concomitant]

REACTIONS (6)
  - Transient ischaemic attack [None]
  - Injury [None]
  - Pain [None]
  - Emotional distress [None]
  - Anxiety [None]
  - Psychological trauma [None]
